FAERS Safety Report 5104200-7 (Version None)
Quarter: 2006Q3

REPORT INFORMATION
  Report Type: 
  Country: None (occurrence: None)
  Receive Date: 20060911
  Receipt Date: 20060822
  Transmission Date: 20061208
  Serious: Yes (Other)
  Sender: FDA-Public Use
  Company Number: CA200608002705

PATIENT
  Age: 49 Year
  Sex: Female

DRUGS (4)
  1. FORTEO [Suspect]
     Indication: OSTEOPOROSIS
     Dosage: 20 UG, DAILY (1/D)
     Dates: start: 20060622
  2. FORTEO PEN (FORTEO PEN),  PEN, DISPOSABLE [Concomitant]
  3. CITALOPRAM HYDROBROMIDE [Concomitant]
  4. ACETAMINOPHEN [Concomitant]

REACTIONS (4)
  - BLOOD PRESSURE DECREASED [None]
  - FATIGUE [None]
  - HEART RATE DECREASED [None]
  - MALAISE [None]
